FAERS Safety Report 9702080 (Version 1)
Quarter: 2013Q4

REPORT INFORMATION
  Report Type: Spontaneous
  Country: US (occurrence: None)
  Receive Date: 20131120
  Receipt Date: 20131120
  Transmission Date: 20140711
  Serious: Yes (Hospitalization)
  Sender: FDA-Public Use
  Company Number: 2013-US-003030

PATIENT
  Age: 68 Year
  Sex: Female

DRUGS (1)
  1. FAZACLO ODT (CLOZAPINE) TABLET, 100MG [Suspect]
     Route: 048
     Dates: start: 20111230

REACTIONS (3)
  - Cardiac failure [None]
  - Respiratory distress [None]
  - Drug administration error [None]
